FAERS Safety Report 4984280-X (Version None)
Quarter: 2006Q2

REPORT INFORMATION
  Report Type: 
  Country: None (occurrence: None)
  Receive Date: 20060420
  Receipt Date: 20060407
  Transmission Date: 20061013
  Serious: Yes (Hospitalization)
  Sender: FDA-Public Use
  Company Number: 2006039243

PATIENT
  Age: 65 Year
  Sex: Male
  Weight: 54 kg

DRUGS (1)
  1. SUTENT [Suspect]
     Indication: GASTROINTESTINAL STROMAL TUMOUR
     Dosage: 50 MG (50 MG, 1 IN 1 D), ORAL
     Route: 048
     Dates: start: 20060220

REACTIONS (8)
  - ASCITES [None]
  - BODY TEMPERATURE INCREASED [None]
  - CLOSTRIDIUM COLITIS [None]
  - DYSPNOEA [None]
  - GENERAL PHYSICAL HEALTH DETERIORATION [None]
  - REFUSAL OF TREATMENT BY PATIENT [None]
  - URINE OUTPUT DECREASED [None]
  - VOMITING [None]
